FAERS Safety Report 9076081 (Version 1)
Quarter: 2013Q1

REPORT INFORMATION
  Report Type: Report from Study
  Country: US (occurrence: US)
  Receive Date: 20130129
  Receipt Date: 20130129
  Transmission Date: 20140127
  Serious: No
  Sender: FDA-Public Use
  Company Number: US-ABBOTT-12P-163-0935403-00

PATIENT
  Sex: Female
  Weight: 92.16 kg

DRUGS (3)
  1. HUMIRA 40 MG/0.8 ML PEN [Suspect]
     Indication: RHEUMATOID ARTHRITIS
  2. VITAMINS [Concomitant]
     Indication: VITAMIN SUPPLEMENTATION
  3. BIRTH CONTROL MEDICATION [Concomitant]
     Indication: CONTRACEPTION

REACTIONS (4)
  - Injection site papule [Not Recovered/Not Resolved]
  - Injection site erythema [Not Recovered/Not Resolved]
  - Injection site pruritus [Not Recovered/Not Resolved]
  - Joint injury [Not Recovered/Not Resolved]
